FAERS Safety Report 17957690 (Version 1)
Quarter: 2020Q2

REPORT INFORMATION
  Report Type: Spontaneous
  Country: GB (occurrence: GB)
  Receive Date: 20200629
  Receipt Date: 20200629
  Transmission Date: 20200714
  Serious: Yes (Other)
  Sender: FDA-Public Use
  Company Number: GB-MYLANLABS-2020M1058170

PATIENT
  Age: 48 Year
  Sex: Male
  Weight: 72 kg

DRUGS (15)
  1. ALUMINIUM HYDROXIDE [Concomitant]
     Active Substance: ALUMINUM HYDROXIDE
     Dosage: 1 DOSAGE FORM
     Dates: start: 20200520, end: 20200522
  2. SODIUM VALPROATE [Concomitant]
     Active Substance: VALPROATE SODIUM
     Dosage: 1 DOSAGE FORM
     Dates: start: 20200520
  3. METOCLOPRAMIDE. [Concomitant]
     Active Substance: METOCLOPRAMIDE
     Dosage: 1 DOSAGE FORM
     Dates: start: 20200519, end: 20200524
  4. IBUPROFEN. [Suspect]
     Active Substance: IBUPROFEN
     Indication: PRODUCT USED FOR UNKNOWN INDICATION
     Dosage: 200 MILLIGRAM
     Dates: start: 20200527
  5. MEBEVERINE HYDROCHLORIDE [Concomitant]
     Active Substance: MEBEVERINE HYDROCHLORIDE
     Dosage: 1 DOSAGE FORM
     Dates: start: 20200519, end: 20200526
  6. PABRINEX                           /01800301/ [Concomitant]
     Dosage: 1 PAIR OF AMPOULES
     Dates: start: 20200522, end: 20200525
  7. METHADONE [Concomitant]
     Active Substance: METHADONE HYDROCHLORIDE
     Indication: PRODUCT USED FOR UNKNOWN INDICATION
     Dosage: 20 MILLILITER
     Dates: start: 20200522
  8. THIAMINE. [Concomitant]
     Active Substance: THIAMINE
     Dosage: 1 DOSAGE FORM
     Dates: start: 20200525
  9. SALBUTAMOL [Concomitant]
     Active Substance: ALBUTEROL
     Dosage: 1-2 PUFFS WHEN REQUIRED UP TO FOUR TIMES DAILY
     Route: 055
     Dates: start: 20200527
  10. PARACETAMOL [Concomitant]
     Active Substance: ACETAMINOPHEN
     Dosage: 1-2
     Dates: start: 20200519, end: 20200526
  11. OMEPRAZOLE. [Concomitant]
     Active Substance: OMEPRAZOLE
     Dosage: 1 DOSAGE FORM
     Dates: start: 20200527
  12. MUCOGEL                            /00082501/ [Concomitant]
     Dosage: 2X5ML SPOON, AS NECESSARY
     Dates: start: 20200527
  13. LOPERAMIDE [Concomitant]
     Active Substance: LOPERAMIDE
     Dosage: 1 DOSAGE FORM
     Dates: start: 20200519, end: 20200524
  14. DUORESP SPIROMAX [Concomitant]
     Active Substance: BUDESONIDE\FORMOTEROL
     Dosage: 1-2 PUFFS TO BE TAKEN TWICE DAILY PLUS 1 PUFF WHEN REQUIRED (MAX 6 PUFFS DAILY)
     Route: 055
     Dates: start: 20200521
  15. CHLORDIAZEPOXIDE. [Concomitant]
     Active Substance: CHLORDIAZEPOXIDE
     Dosage: VARIABLE DOSE
     Dates: start: 20200525, end: 20200602

REACTIONS (2)
  - Drug dependence [Unknown]
  - Urticaria [Not Recovered/Not Resolved]

NARRATIVE: CASE EVENT DATE: 20200604
